FAERS Safety Report 4988450-6 (Version None)
Quarter: 2006Q2

REPORT INFORMATION
  Report Type: 
  Country: None (occurrence: None)
  Receive Date: 20060502
  Receipt Date: 20060104
  Transmission Date: 20061013
  Serious: Yes (Life-Threatening, Hospitalization)
  Sender: FDA-Public Use
  Company Number: GB-SANOFI-SYNTHELABO-F01200600012

PATIENT
  Sex: Female

DRUGS (10)
  1. OXALIPLATIN [Suspect]
     Indication: COLON CANCER
     Route: 042
     Dates: start: 20051212, end: 20051212
  2. CAPECITABINE [Suspect]
     Dosage: 1800 MG TWICE PER DAY
     Route: 048
     Dates: end: 20051205
  3. AVASTIN [Suspect]
     Route: 041
     Dates: start: 20051212, end: 20051212
  4. OMEPRAZOLE [Concomitant]
  5. ONDANSETRON [Concomitant]
     Dates: start: 20051121
  6. DEXAMETHASONE [Concomitant]
     Dates: start: 20051121
  7. DIAZEPAM [Concomitant]
  8. CITALOPRAM [Concomitant]
  9. TEMAZEPAM [Concomitant]
  10. MAGNESIUM [Concomitant]
     Dates: start: 20051123

REACTIONS (6)
  - ANXIETY [None]
  - CONDITION AGGRAVATED [None]
  - DRUG HYPERSENSITIVITY [None]
  - LARYNGOSPASM [None]
  - PANIC ATTACK [None]
  - REFUSAL OF TREATMENT BY PATIENT [None]
